FAERS Safety Report 7788700-7 (Version None)
Quarter: 2011Q3

REPORT INFORMATION
  Report Type: 
  Country: None (occurrence: None)
  Receive Date: 20110928
  Receipt Date: 20110914
  Transmission Date: 20111222
  Serious: Yes (Other)
  Sender: FDA-Public Use
  Company Number: 2011AP002068

PATIENT
  Age: 79 Year
  Sex: Female
  Weight: 54.42 kg

DRUGS (5)
  1. ATORVASTATIN [Concomitant]
  2. LATANOPROST [Suspect]
     Indication: GLAUCOMA
     Dosage: 2 GTT;QD;OPH
     Route: 047
     Dates: start: 20110501, end: 20110601
  3. VALSARTAN [Concomitant]
  4. LATANOPROST [Concomitant]
  5. AMITRIPTYLINE HCL [Concomitant]

REACTIONS (1)
  - INTRAOCULAR PRESSURE INCREASED [None]
